FAERS Safety Report 11491671 (Version 6)
Quarter: 2019Q3

REPORT INFORMATION
  Report Type: Spontaneous
  Country: US (occurrence: US)
  Receive Date: 20150910
  Receipt Date: 20190729
  Transmission Date: 20191004
  Serious: Yes (Congenital Anomaly, Other)
  Sender: FDA-Public Use
  Company Number: US-APOTEX-2015AP012589

PATIENT
  Sex: Female
  Weight: 3 kg

DRUGS (7)
  1. PAXIL [Suspect]
     Active Substance: PAROXETINE HYDROCHLORIDE
     Dosage: UNK
     Route: 064
  2. PAXIL [Suspect]
     Active Substance: PAROXETINE HYDROCHLORIDE
     Indication: DEPRESSION
     Dosage: UNK
     Route: 064
  3. PAXIL [Suspect]
     Active Substance: PAROXETINE HYDROCHLORIDE
     Dosage: 20 MG, QD
     Route: 064
  4. PAXIL [Suspect]
     Active Substance: PAROXETINE HYDROCHLORIDE
     Dosage: 30 MG, QD
     Route: 064
  5. PAXIL [Suspect]
     Active Substance: PAROXETINE HYDROCHLORIDE
     Dosage: 40 MG, QD
     Route: 064
  6. PAROXETINE. [Suspect]
     Active Substance: PAROXETINE
     Indication: PRODUCT USED FOR UNKNOWN INDICATION
     Dosage: 40 MG, UNK
     Route: 064
  7. PAXIL [Suspect]
     Active Substance: PAROXETINE HYDROCHLORIDE
     Indication: ANXIETY
     Dosage: 20 MG, UNK
     Route: 064

REACTIONS (19)
  - Paralysis [Unknown]
  - Fallot^s tetralogy [Unknown]
  - Congenital pulmonary valve disorder [Unknown]
  - Laryngomalacia [Unknown]
  - Ascites [Unknown]
  - Foetal exposure during pregnancy [Unknown]
  - Atelectasis neonatal [Unknown]
  - Bronchomalacia [Unknown]
  - Chronic respiratory failure [Unknown]
  - Tracheomalacia [Unknown]
  - Heart disease congenital [Unknown]
  - Pulmonary artery stenosis [Unknown]
  - Cardiac failure congestive [Unknown]
  - Restrictive pulmonary disease [Unknown]
  - Congenital tracheomalacia [Unknown]
  - Ventricular septal defect [Unknown]
  - Aortic valve incompetence [Unknown]
  - Right aortic arch [Unknown]
  - Bundle branch block right [Unknown]
